FAERS Safety Report 10094246 (Version 2)
Quarter: 2014Q2

REPORT INFORMATION
  Report Type: Spontaneous
  Country: DE (occurrence: DE)
  Receive Date: 20140422
  Receipt Date: 20140520
  Transmission Date: 20141212
  Serious: Yes (Disabling, Other)
  Sender: FDA-Public Use
  Company Number: DE-BAYER-2014-057091

PATIENT
  Age: 76 Year
  Sex: Male
  Weight: 65 kg

DRUGS (1)
  1. BETAFERON [Suspect]
     Indication: MULTIPLE SCLEROSIS
     Dosage: 4 MIU, UNK
     Route: 058
     Dates: start: 2002

REACTIONS (3)
  - Lymphoma [None]
  - Chronic lymphocytic leukaemia [None]
  - Retroperitoneal lymphadenopathy [None]
